FAERS Safety Report 20202122 (Version 2)
Quarter: 2022Q1

REPORT INFORMATION
  Report Type: Spontaneous
  Country: MX (occurrence: MX)
  Receive Date: 20211217
  Receipt Date: 20220122
  Transmission Date: 20220423
  Serious: Yes (Death, Life-Threatening)
  Sender: FDA-Public Use
  Company Number: MX-NOVARTISPH-NVSC2021MX289523

PATIENT
  Age: 93 Year
  Sex: Female
  Weight: 45 kg

DRUGS (5)
  1. EXELON [Suspect]
     Active Substance: RIVASTIGMINE TARTRATE
     Indication: Cerebral disorder
     Dosage: 1 DOSAGE FORM, QD
     Route: 003
     Dates: start: 2020, end: 20211030
  2. EXELON [Suspect]
     Active Substance: RIVASTIGMINE TARTRATE
     Dosage: 1 DOSAGE FORM (9 MG), QD
     Route: 003
     Dates: start: 202009, end: 20211030
  3. ACETAMINOPHEN [Concomitant]
     Active Substance: ACETAMINOPHEN
     Indication: Blood pressure measurement
     Dosage: 500 MG, QD (START DATE 10 YEARS AGO)
     Route: 048
     Dates: end: 20211030
  4. OMEPRAZOLE [Concomitant]
     Active Substance: OMEPRAZOLE
     Indication: Abdominal discomfort
     Dosage: 1 DOSAGE FORM, QD
     Route: 048
     Dates: end: 20211030
  5. ENALAPRIL [Concomitant]
     Active Substance: ENALAPRIL
     Indication: Blood pressure measurement
     Dosage: 2  (10 MG) DOSAGE FORM, QD (START DATE 10 YEARS AGO)
     Route: 048
     Dates: end: 20211030

REACTIONS (4)
  - Cardiac arrest [Fatal]
  - Loss of consciousness [Not Recovered/Not Resolved]
  - Malaise [Not Recovered/Not Resolved]
  - Off label use [Unknown]

NARRATIVE: CASE EVENT DATE: 20210928
